FAERS Safety Report 13533480 (Version 1)
Quarter: 2017Q2

REPORT INFORMATION
  Report Type: Other
  Country: US (occurrence: US)
  Receive Date: 20170510
  Receipt Date: 20170510
  Transmission Date: 20170830
  Serious: Yes (Other)
  Sender: FDA-Public Use
  Company Number: US-SHIRE-US201710150

PATIENT
  Age: 21 Year
  Sex: Female

DRUGS (1)
  1. NATPARA (PARATHYROID HORMONE) [Suspect]
     Active Substance: PARATHYROID HORMONE
     Indication: HYPOPARATHYROIDISM
     Dosage: 50 ?G, UNKNOWN
     Route: 058
     Dates: start: 20151028

REACTIONS (6)
  - Product quality issue [Unknown]
  - Dyspnoea [Unknown]
  - Malaise [Unknown]
  - Throat tightness [Unknown]
  - Blood calcium decreased [Unknown]
  - Skin tightness [Unknown]

NARRATIVE: CASE EVENT DATE: 201705
